FAERS Safety Report 6454650-1 (Version None)
Quarter: 2009Q4

REPORT INFORMATION
  Report Type: 
  Country: None (occurrence: None)
  Receive Date: 20091124
  Receipt Date: 20091120
  Transmission Date: 20100525
  Serious: Yes (Death)
  Sender: FDA-Public Use
  Company Number: PHHY2009MX51146

PATIENT
  Sex: Male

DRUGS (6)
  1. GALVUS MET [Suspect]
     Indication: DIABETES MELLITUS
     Dosage: 500/50 MG
     Dates: start: 20090701, end: 20091119
  2. METFORMIN HCL [Concomitant]
  3. METOPROLOL TARTRATE [Concomitant]
  4. ASPIRIN [Concomitant]
  5. BEZAFIBRATE [Concomitant]
  6. ATORVASTATIN CALCIUM [Concomitant]

REACTIONS (3)
  - ACUTE MYOCARDIAL INFARCTION [None]
  - CHEST PAIN [None]
  - ELECTROCARDIOGRAM ST SEGMENT ELEVATION [None]
